FAERS Safety Report 10891404 (Version 2)
Quarter: 2015Q1

REPORT INFORMATION
  Report Type: Spontaneous
  Country: US (occurrence: US)
  Receive Date: 20150306
  Receipt Date: 20150331
  Transmission Date: 20150721
  Serious: Yes (Death, Hospitalization)
  Sender: FDA-Public Use
  Company Number: US-INCYTE CORPORATION-2015IN000286

PATIENT
  Age: 87 Year
  Sex: Female
  Weight: 75.74 kg

DRUGS (11)
  1. JAKAFI [Suspect]
     Active Substance: RUXOLITINIB
     Indication: MYELOFIBROSIS
     Dosage: 5 MG, BID
     Route: 048
     Dates: start: 20150115, end: 20150220
  2. FUROSEMIDE. [Concomitant]
     Active Substance: FUROSEMIDE
  3. SONATA                             /01454001/ [Concomitant]
  4. FISH OIL [Concomitant]
     Active Substance: FISH OIL
  5. ZOFRAN                             /00955301/ [Concomitant]
     Active Substance: ONDANSETRON HYDROCHLORIDE
  6. POTASSIUM CHLORIDE. [Concomitant]
     Active Substance: POTASSIUM CHLORIDE
  7. VENTOLIN [Concomitant]
     Active Substance: ALBUTEROL SULFATE
  8. CALCIUM [Concomitant]
     Active Substance: CALCIUM
  9. JAKAFI [Suspect]
     Active Substance: RUXOLITINIB
     Dosage: 10 MG, BID
     Route: 048
     Dates: start: 20150226
  10. MULTIVITAMIN                       /07504101/ [Concomitant]
     Active Substance: VITAMINS
  11. METOPROLOL [Concomitant]
     Active Substance: METOPROLOL

REACTIONS (13)
  - Upper respiratory tract infection [Unknown]
  - Pneumonia [Fatal]
  - Anxiety [Unknown]
  - Peripheral swelling [Not Recovered/Not Resolved]
  - Acute kidney injury [Unknown]
  - Myelodysplastic syndrome transformation [Unknown]
  - Pulmonary oedema [Unknown]
  - Cardiac failure [Unknown]
  - Lung disorder [Unknown]
  - Hypoxia [Unknown]
  - Insomnia [Unknown]
  - Acute respiratory failure [Fatal]
  - Dyspnoea [Unknown]

NARRATIVE: CASE EVENT DATE: 2015
